FAERS Safety Report 8806579 (Version 2)
Quarter: 2012Q4

REPORT INFORMATION
  Report Type: Report from Study
  Country: JP (occurrence: JP)
  Receive Date: 20120925
  Receipt Date: 20120926
  Transmission Date: 20130627
  Serious: Yes (Hospitalization)
  Sender: FDA-Public Use
  Company Number: JP-MSD-1207JPN003330

PATIENT
  Age: 60 Year
  Sex: Male
  Weight: 56 kg

DRUGS (46)
  1. UNSPECIFIED INGREDIENT [Suspect]
     Indication: PARKINSON^S DISEASE
     Dosage: Amount 6
     Route: 048
     Dates: start: 20120517, end: 20120521
  2. UNSPECIFIED INGREDIENT [Suspect]
     Dosage: Amount 6
     Route: 048
     Dates: start: 20120523, end: 20120527
  3. UNSPECIFIED INGREDIENT [Suspect]
     Dosage: Amount 6
     Route: 048
     Dates: start: 20120522, end: 20120522
  4. UNSPECIFIED INGREDIENT [Suspect]
     Dosage: Amount 6
     Route: 048
     Dates: start: 20120528, end: 20120528
  5. UNSPECIFIED INGREDIENT [Suspect]
     Dosage: Amount 6
     Route: 048
     Dates: start: 20120529, end: 20120529
  6. UNSPECIFIED INGREDIENT [Suspect]
     Dosage: Amount 6
     Route: 048
     Dates: start: 20120530, end: 20120530
  7. UNSPECIFIED INGREDIENT [Suspect]
     Dosage: Amount 6
     Route: 048
     Dates: start: 20120531, end: 20120613
  8. UNSPECIFIED INGREDIENT [Suspect]
     Dosage: 100 mg, hs
     Route: 048
     Dates: start: 20120521, end: 20120523
  9. UNSPECIFIED INGREDIENT [Suspect]
     Dosage: 200 mg, hs
     Route: 048
     Dates: start: 20120524, end: 20120524
  10. UNSPECIFIED INGREDIENT [Suspect]
     Dosage: 200 mg, hs
     Route: 048
     Dates: start: 20120526, end: 20120526
  11. UNSPECIFIED INGREDIENT [Suspect]
     Dosage: 100 mg, hs
     Route: 048
     Dates: start: 20120527, end: 20120528
  12. UNSPECIFIED INGREDIENT [Suspect]
     Dosage: 300 mg, hs Amount of three nights
     Route: 048
     Dates: start: 20120529, end: 20120529
  13. UNSPECIFIED INGREDIENT [Suspect]
     Dosage: 100 mg, hs
     Route: 048
     Dates: start: 20120530, end: 20120530
  14. UNSPECIFIED INGREDIENT [Suspect]
     Dosage: 300 mg, hs, Amount of three nights
     Route: 048
     Dates: start: 20120531, end: 20120531
  15. UNSPECIFIED INGREDIENT [Suspect]
     Dosage: 200 mg, hs, Amount of two and night
     Route: 048
     Dates: start: 20120601, end: 20120602
  16. UNSPECIFIED INGREDIENT [Suspect]
     Dosage: 100 mg, hs, Amount of two and night
     Route: 048
     Dates: start: 20120603, end: 20120603
  17. UNSPECIFIED INGREDIENT [Suspect]
     Dosage: 200 mg, hs, Amount of two and night
     Route: 048
     Dates: start: 20120604, end: 20120610
  18. UNSPECIFIED INGREDIENT [Suspect]
     Dosage: 300 mg, hs, Amount of two and night
     Route: 048
     Dates: start: 20120611, end: 20120612
  19. UNSPECIFIED INGREDIENT [Suspect]
     Dosage: 200 mg, hs, Amount of two and night
     Route: 048
     Dates: start: 20120613, end: 20120613
  20. UNSPECIFIED INGREDIENT [Suspect]
     Dosage: 300 mg, hs, Amount of two and night
     Route: 048
     Dates: start: 20120614, end: 20120614
  21. UNSPECIFIED INGREDIENT [Suspect]
     Dosage: 200 mg, hs, Amount of two and night
     Route: 048
     Dates: start: 20120615, end: 20120617
  22. UNSPECIFIED INGREDIENT [Suspect]
     Dosage: 300 mg, hs, Amount of three and night
     Route: 048
     Dates: start: 20120618, end: 20120619
  23. UNSPECIFIED INGREDIENT [Suspect]
     Dosage: 200 mg amount of two nights
     Route: 048
     Dates: start: 20120620, end: 20120620
  24. UNSPECIFIED INGREDIENT [Suspect]
     Dosage: 300 mg amount of three nights
     Route: 048
     Dates: start: 20120621, end: 20120625
  25. UNSPECIFIED INGREDIENT [Suspect]
     Dosage: 300 mg amount of three nights
     Route: 048
     Dates: start: 20120621, end: 20120625
  26. UNSPECIFIED INGREDIENT [Suspect]
     Dosage: Amount of six rescue Dowes
     Route: 048
     Dates: start: 20120622, end: 20120622
  27. UNSPECIFIED INGREDIENT [Suspect]
     Dosage: Amount of six rescue Dowes
     Route: 048
     Dates: start: 20120623, end: 20120624
  28. UNSPECIFIED INGREDIENT [Suspect]
     Indication: PARKINSON^S DISEASE
     Dosage: divided in 7
     Route: 048
     Dates: start: 20120626, end: 20120626
  29. UNSPECIFIED INGREDIENT [Suspect]
     Dosage: 100 mg, Amount of three nights divided in 3
     Route: 048
     Dates: start: 20120626
  30. UNSPECIFIED INGREDIENT [Suspect]
     Indication: PARKINSON^S DISEASE
     Dosage: 100 mg, qd, Separate 1
     Route: 048
     Dates: start: 20120627, end: 20120627
  31. UNSPECIFIED [Suspect]
     Indication: PARKINSON^S DISEASE
     Dosage: 100 mg, qd
     Route: 048
     Dates: start: 20120627, end: 20120628
  32. UNSPECIFIED INGREDIENT [Suspect]
     Dosage: 100 mg, qd
     Route: 048
     Dates: start: 20120629
  33. CARBIDOPA (+) LEVODOPA [Suspect]
     Indication: PARKINSON^S DISEASE
     Dosage: 3.0-3.8ml/hr and addition 2ml
     Route: 050
     Dates: start: 20120614, end: 20120614
  34. CARBIDOPA (+) LEVODOPA [Suspect]
     Dosage: 3.6-3.8ml/hr and addition 1ml
     Route: 050
     Dates: start: 20120615, end: 20120615
  35. CARBIDOPA (+) LEVODOPA [Suspect]
     Dosage: 3.8ml/hr
     Route: 050
     Dates: start: 20120616, end: 20120616
  36. CARBIDOPA (+) LEVODOPA [Suspect]
     Dosage: 3.8-4.5ml/hr and addition 1ml
     Route: 050
     Dates: start: 20120617, end: 20120617
  37. CARBIDOPA (+) LEVODOPA [Suspect]
     Dosage: 4.5ml/hr
     Route: 050
     Dates: start: 20120618, end: 20120618
  38. CARBIDOPA (+) LEVODOPA [Suspect]
     Dosage: 4.5ml/hr
     Route: 050
     Dates: start: 20120619, end: 20120619
  39. CARBIDOPA (+) LEVODOPA [Suspect]
     Dosage: 4.2ml/hr
     Route: 050
     Dates: start: 20120620, end: 20120620
  40. CARBIDOPA (+) LEVODOPA [Suspect]
     Dosage: 4.2-4.5ml/hr
     Route: 050
     Dates: start: 20120621, end: 20120621
  41. ALPRAZOLAM [Concomitant]
     Indication: INSOMNIA
     Dosage: Divided dose frequency U
     Route: 048
     Dates: start: 20120417
  42. SENNOSIDES [Concomitant]
     Indication: CONSTIPATION
     Dosage: divided dose frequency U
     Dates: start: 20120217
  43. INDOMETHACIN [Concomitant]
     Indication: MUSCULOSKELETAL PAIN
     Dosage: Divided dose frequency unknown
     Route: 062
     Dates: start: 20120611
  44. INDOMETHACIN [Concomitant]
     Dosage: Divided dose frequency unknown
     Route: 048
     Dates: start: 20120217
  45. INDOMETHACIN [Concomitant]
     Dosage: Daily dosage unknown
     Route: 061
     Dates: start: 20120522
  46. INDOMETHACIN [Concomitant]
     Dosage: Daily dosage unknown
     Route: 062
     Dates: start: 20120611

REACTIONS (3)
  - Somatic hallucination [Recovered/Resolved]
  - Hallucination, auditory [Recovered/Resolved]
  - Delusion [Recovered/Resolved]
